FAERS Safety Report 4775462-0 (Version None)
Quarter: 2005Q3

REPORT INFORMATION
  Report Type: 
  Country: None (occurrence: None)
  Receive Date: 20050920
  Receipt Date: 20050906
  Transmission Date: 20060218
  Serious: Yes (Death)
  Sender: FDA-Public Use
  Company Number: 217557

PATIENT
  Age: 66 Year
  Sex: Male
  Weight: 86.2 kg

DRUGS (1)
  1. AVASTIN [Suspect]
     Indication: COLORECTAL CANCER
     Dosage: 5 MG/KG, Q2W, INTRAVENOUS
     Route: 042
     Dates: start: 20040409, end: 20050107

REACTIONS (7)
  - ATRIAL FIBRILLATION [None]
  - COLON CANCER METASTATIC [None]
  - DYSPHAGIA [None]
  - METASTASES TO PERITONEUM [None]
  - OESOPHAGEAL PERFORATION [None]
  - OESOPHAGEAL STENOSIS [None]
  - PNEUMONIA [None]
